FAERS Safety Report 7596553-5 (Version None)
Quarter: 2011Q3

REPORT INFORMATION
  Report Type: 
  Country: None (occurrence: None)
  Receive Date: 20110708
  Receipt Date: 20110701
  Transmission Date: 20111222
  Serious: Yes (Other)
  Sender: FDA-Public Use
  Company Number: FR-AMGEN-FRASP2011005864

PATIENT
  Age: 46 Year
  Sex: Male
  Weight: 64 kg

DRUGS (1)
  1. ENBREL [Suspect]
     Indication: PSORIASIS
     Dosage: 50 MG, WEEKLY
     Dates: start: 20070411, end: 20110201

REACTIONS (2)
  - EMBOLIC STROKE [None]
  - VISUAL IMPAIRMENT [None]
